FAERS Safety Report 8383438-X (Version None)
Quarter: 2012Q2

REPORT INFORMATION
  Report Type: 
  Country: None (occurrence: None)
  Receive Date: 20120524
  Receipt Date: 20120516
  Transmission Date: 20120825
  Serious: Yes (Other)
  Sender: FDA-Public Use
  Company Number: PHHY2012BR042566

PATIENT
  Age: 45 Year
  Sex: Male
  Weight: 74 kg

DRUGS (1)
  1. TASIGNA [Suspect]
     Indication: CHRONIC MYELOID LEUKAEMIA

REACTIONS (5)
  - FRACTURE [None]
  - JOINT SWELLING [None]
  - MEMORY IMPAIRMENT [None]
  - VENOUS INSUFFICIENCY [None]
  - ABNORMAL BEHAVIOUR [None]
